FAERS Safety Report 23397908 (Version 1)
Quarter: 2024Q1

REPORT INFORMATION
  Report Type: Spontaneous
  Country: MY (occurrence: MY)
  Receive Date: 20240112
  Receipt Date: 20240112
  Transmission Date: 20240409
  Serious: Yes (Death, Other)
  Sender: FDA-Public Use
  Company Number: MY-002147023-NVSC2024MY005682

PATIENT

DRUGS (1)
  1. NILOTINIB [Suspect]
     Active Substance: NILOTINIB
     Indication: Chronic myeloid leukaemia
     Dosage: UNK
     Route: 065
     Dates: start: 20140522

REACTIONS (3)
  - Neutropenic sepsis [Fatal]
  - Chronic myeloid leukaemia transformation [Unknown]
  - Chronic myeloid leukaemia recurrent [Unknown]

NARRATIVE: CASE EVENT DATE: 20151222
